FAERS Safety Report 11752984 (Version 1)
Quarter: 2015Q4

REPORT INFORMATION
  Report Type: Spontaneous
  Country: US (occurrence: US)
  Receive Date: 20151119
  Receipt Date: 20151119
  Transmission Date: 20160304
  Serious: No
  Sender: FDA-Public Use
  Company Number: PHEH2015US023239

PATIENT
  Age: 18 Year
  Sex: Female

DRUGS (1)
  1. TASIGNA [Suspect]
     Active Substance: NILOTINIB
     Indication: CHRONIC MYELOID LEUKAEMIA
     Dosage: UNK UNK, BID
     Route: 065
     Dates: start: 20130901

REACTIONS (3)
  - Lymphadenopathy [Unknown]
  - Gait disturbance [Unknown]
  - Fatigue [Recovered/Resolved]
